FAERS Safety Report 11806748 (Version 4)
Quarter: 2019Q4

REPORT INFORMATION
  Report Type: Spontaneous
  Country: US (occurrence: US)
  Receive Date: 20151207
  Receipt Date: 20191107
  Transmission Date: 20200122
  Serious: Yes (Other)
  Sender: FDA-Public Use
  Company Number: US-PFIZER INC-2015421789

PATIENT
  Age: 68 Year
  Sex: Male

DRUGS (5)
  1. LEVITRA [Concomitant]
     Active Substance: VARDENAFIL HYDROCHLORIDE
     Indication: BENIGN PROSTATIC HYPERPLASIA
     Dosage: UNK
  2. VIAGRA [Suspect]
     Active Substance: SILDENAFIL CITRATE
     Indication: ERECTILE DYSFUNCTION
     Dosage: UNK
     Route: 048
     Dates: start: 20050926, end: 20060927
  3. VIAGRA [Suspect]
     Active Substance: SILDENAFIL CITRATE
     Dosage: 100 MG, WEEKLY (ONCE A WEEK)
     Dates: start: 2005, end: 2017
  4. VIAGRA [Suspect]
     Active Substance: SILDENAFIL CITRATE
     Dosage: 100 MG, UNK
     Route: 048
     Dates: start: 2012, end: 2015
  5. ALPROSTADIL. [Concomitant]
     Active Substance: ALPROSTADIL
     Indication: ERECTILE DYSFUNCTION
     Dosage: UNK

REACTIONS (1)
  - Malignant melanoma in situ [Unknown]

NARRATIVE: CASE EVENT DATE: 20130726
